FAERS Safety Report 4621610-2 (Version None)
Quarter: 2005Q1

REPORT INFORMATION
  Report Type: 
  Country: None (occurrence: None)
  Receive Date: 20050328
  Receipt Date: 20050225
  Transmission Date: 20050727
  Serious: Yes (Hospitalization, Other)
  Sender: FDA-Public Use
  Company Number: 2004092158

PATIENT
  Age: 49 Year
  Sex: Female
  Weight: 97.5234 kg

DRUGS (7)
  1. BEXTRA [Suspect]
     Indication: PAIN
     Dosage: 10 MG
     Dates: start: 20030122, end: 20030101
  2. TUSSIONEX PENNKINETIC (CHLORPHENIRAMINE, HYDROCODONE) [Concomitant]
  3. CONJUGATED ESTROGENS [Concomitant]
  4. ALPRAZOLAM [Concomitant]
  5. LISINOPRIL [Concomitant]
  6. PANTOPRAZOLE (PANTOPRAZOLE) [Concomitant]
  7. LISINOPRIL [Concomitant]

REACTIONS (11)
  - ADVERSE DRUG REACTION [None]
  - ANGIONEUROTIC OEDEMA [None]
  - ARTHROPATHY [None]
  - BLOOD PRESSURE INCREASED [None]
  - BRADYCARDIA [None]
  - COMPARTMENT SYNDROME [None]
  - LEUKOCYTOCLASTIC VASCULITIS [None]
  - PAIN [None]
  - SCAR [None]
  - STEVENS-JOHNSON SYNDROME [None]
  - VASCULITIS [None]
